FAERS Safety Report 6572553-9 (Version None)
Quarter: 2010Q1

REPORT INFORMATION
  Report Type: 
  Country: None (occurrence: None)
  Receive Date: 20100205
  Receipt Date: 20100131
  Transmission Date: 20100710
  Serious: Yes (Other)
  Sender: FDA-Public Use
  Company Number: US-JNJCH-2010003239

PATIENT
  Sex: Female
  Weight: 18.6 kg

DRUGS (4)
  1. ZYRTEC [Suspect]
     Indication: ACCIDENTAL EXPOSURE
     Route: 048
  2. CHILDREN'S BENADRYL ALLERGY [Concomitant]
     Indication: HYPERSENSITIVITY
     Dosage: TEXT:UNSPECIFIED
     Route: 048
  3. IRON [Concomitant]
     Indication: ANAEMIA
     Dosage: TEXT:UNSPECIFIED
     Route: 065
  4. AMOXICILLIN [Concomitant]
     Indication: OROPHARYNGEAL PAIN
     Dosage: TEXT:UNSPECIFIED
     Route: 065

REACTIONS (7)
  - ABDOMINAL PAIN [None]
  - ADVERSE EVENT [None]
  - DYSKINESIA [None]
  - DYSPNOEA [None]
  - HEART RATE INCREASED [None]
  - SOMNOLENCE [None]
  - WRONG DRUG ADMINISTERED [None]
